FAERS Safety Report 26004424 (Version 1)
Quarter: 2025Q4

REPORT INFORMATION
  Report Type: Report from Study
  Country: US (occurrence: US)
  Receive Date: 20251106
  Receipt Date: 20251106
  Transmission Date: 20260117
  Serious: Yes (Other)
  Sender: JOHNSON AND JOHNSON
  Company Number: US-JNJFOC-20251144711

PATIENT
  Age: 53 Year
  Sex: Female

DRUGS (4)
  1. SPRAVATO [Suspect]
     Active Substance: ESKETAMINE
     Indication: Depression
     Dosage: ?84 MG, 12 TOTAL DOSES?
     Route: 045
     Dates: start: 20240124, end: 20240401
  2. SPRAVATO [Suspect]
     Active Substance: ESKETAMINE
     Dosage: ?56  MG, 1 TOTAL DOSES?
     Route: 045
     Dates: start: 20251103, end: 20251103
  3. SPRAVATO [Suspect]
     Active Substance: ESKETAMINE
     Dosage: ?56 MG, 3 TOTAL DOSES?
     Route: 045
     Dates: start: 20240108, end: 20240117
  4. DIAZEPAM [Concomitant]
     Active Substance: DIAZEPAM
     Indication: Product used for unknown indication
     Dosage: PRN
     Route: 065

REACTIONS (1)
  - Sedation [Recovered/Resolved]

NARRATIVE: CASE EVENT DATE: 20251103
